FAERS Safety Report 5903052-2 (Version None)
Quarter: 2008Q3

REPORT INFORMATION
  Report Type: 
  Country: None (occurrence: None)
  Receive Date: 20080930
  Receipt Date: 20080919
  Transmission Date: 20090109
  Serious: Yes (Death)
  Sender: FDA-Public Use
  Company Number: US-ROCHE-587389

PATIENT
  Sex: Male
  Weight: 71.7 kg

DRUGS (2)
  1. CAPECITABINE [Suspect]
     Indication: DRUG USE FOR UNKNOWN INDICATION
     Dosage: STRENGTH: 500MG, 3 TABLETS
     Route: 065
     Dates: start: 20070409
  2. CAPECITABINE [Suspect]
     Dosage: STRENGTH: 150 MG, 2 TABLETS, DOSAGE LOWERED
     Route: 065

REACTIONS (1)
  - DEATH [None]
